FAERS Safety Report 11091005 (Version 1)
Quarter: 2015Q2

REPORT INFORMATION
  Report Type: Spontaneous
  Country: US (occurrence: None)
  Receive Date: 20150504
  Receipt Date: 20150504
  Transmission Date: 20150821
  Serious: Yes (Other)
  Sender: FDA-Public Use
  Company Number: None

PATIENT
  Age: 67 Year
  Sex: Male
  Weight: 112.04 kg

DRUGS (6)
  1. ALBUTEROL. [Concomitant]
     Active Substance: ALBUTEROL
  2. DULOXETINE [Suspect]
     Active Substance: DULOXETINE
     Indication: AFFECTIVE DISORDER
     Dosage: 2 PILLS, QD, OPHTHALMIC
     Route: 047
  3. DULOXETINE [Suspect]
     Active Substance: DULOXETINE
     Indication: PAIN
     Dosage: 2 PILLS, QD, OPHTHALMIC
     Route: 047
  4. MORPHINE [Concomitant]
     Active Substance: MORPHINE
  5. CHOLECALCIFEROL [Concomitant]
     Active Substance: CHOLECALCIFEROL
  6. DOCUSATE [Concomitant]
     Active Substance: DOCUSATE

REACTIONS (2)
  - Constipation [None]
  - Dysuria [None]

NARRATIVE: CASE EVENT DATE: 20150501
